FAERS Safety Report 7928094-7 (Version None)
Quarter: 2011Q4

REPORT INFORMATION
  Report Type: 
  Country: None (occurrence: None)
  Receive Date: 20111118
  Receipt Date: 20111109
  Transmission Date: 20120403
  Serious: Yes (Hospitalization, Other)
  Sender: FDA-Public Use
  Company Number: JP-GLAXOSMITHKLINE-B0760896A

PATIENT
  Sex: Male

DRUGS (7)
  1. FLUTICASONE PROPIONATE/SALMETEROL [Suspect]
     Route: 055
     Dates: start: 20111102, end: 20111102
  2. THEOLONG [Concomitant]
     Indication: ASTHMA
     Dosage: 400MG PER DAY
     Route: 048
     Dates: end: 20111102
  3. FLUTICASONE PROPIONATE/SALMETEROL [Suspect]
     Indication: ASTHMA
     Dosage: 500MG PER DAY
     Route: 055
     Dates: start: 20111101, end: 20111101
  4. MEPTIN [Concomitant]
     Indication: ASTHMA
     Dosage: 1.2ML PER DAY
     Route: 055
     Dates: start: 20111031, end: 20111102
  5. UNASYN [Concomitant]
     Indication: BRONCHITIS
     Dosage: 4.5G PER DAY
     Route: 042
     Dates: start: 20111031, end: 20111107
  6. SINGULAIR [Concomitant]
     Indication: ASTHMA
     Dosage: 10MG PER DAY
     Route: 048
  7. SOLU-MEDROL [Concomitant]
     Indication: ASTHMA
     Route: 042
     Dates: start: 20111031, end: 20111107

REACTIONS (13)
  - TACHYCARDIA [None]
  - ATRIAL FIBRILLATION [None]
  - WHEEZING [None]
  - DYSPNOEA [None]
  - OVERDOSE [None]
  - TREMOR [None]
  - RENAL IMPAIRMENT [None]
  - BLOOD PRESSURE DECREASED [None]
  - BLOOD UREA INCREASED [None]
  - BLOOD LACTATE DEHYDROGENASE INCREASED [None]
  - ASTHMA [None]
  - BLOOD CREATINE INCREASED [None]
  - DEHYDRATION [None]
